FAERS Safety Report 7058443-6 (Version None)
Quarter: 2010Q4

REPORT INFORMATION
  Report Type: 
  Country: None (occurrence: None)
  Receive Date: 20101022
  Receipt Date: 20101014
  Transmission Date: 20110411
  Serious: No
  Sender: FDA-Public Use
  Company Number: US-PFIZER INC-2008027735

PATIENT
  Sex: Female
  Weight: 53.98 kg

DRUGS (1)
  1. ZITHROMAX [Suspect]
     Indication: SINUSITIS
     Dosage: 250 MG, UNK

REACTIONS (1)
  - ABDOMINAL DISCOMFORT [None]
